FAERS Safety Report 26092599 (Version 1)
Quarter: 2025Q4

REPORT INFORMATION
  Report Type: Spontaneous
  Country: EU (occurrence: EU)
  Receive Date: 20251126
  Receipt Date: 20251126
  Transmission Date: 20260118
  Serious: No
  Sender: ALKEM
  Company Number: EU-ALKEM LABORATORIES LIMITED-CN-ALKEM-2025-07310

PATIENT
  Age: 10 Year
  Sex: Male

DRUGS (3)
  1. MYCOPHENOLATE MOFETIL [Suspect]
     Active Substance: MYCOPHENOLATE MOFETIL
     Indication: Stiff skin syndrome
     Dosage: 750 MILLIGRAM, BID (EVERY 12 HOURS)
     Route: 065
  2. LOSARTAN [Suspect]
     Active Substance: LOSARTAN
     Indication: Stiff skin syndrome
     Dosage: 12.5 MG/DAY
     Route: 065
  3. LOSARTAN [Suspect]
     Active Substance: LOSARTAN
     Dosage: 25 MG/DAY
     Route: 065

REACTIONS (1)
  - Therapy partial responder [Unknown]
